FAERS Safety Report 8529466-2 (Version None)
Quarter: 2012Q3

REPORT INFORMATION
  Report Type: 
  Country: None (occurrence: None)
  Receive Date: 20120723
  Receipt Date: 20120712
  Transmission Date: 20120928
  Serious: Yes (Other)
  Sender: FDA-Public Use
  Company Number: US-JNJFOC-20120600505

PATIENT
  Sex: Female
  Weight: 74.39 kg

DRUGS (4)
  1. ORAL CONTRACEPTIVE [Suspect]
     Indication: PRODUCT USED FOR UNKNOWN INDICATION
     Route: 048
  2. STELARA [Suspect]
     Indication: PSORIASIS
     Route: 058
     Dates: end: 20120501
  3. AVIANE-28 [Concomitant]
     Indication: PRODUCT USED FOR UNKNOWN INDICATION
     Route: 065
  4. DESONIDE [Concomitant]
     Indication: PRODUCT USED FOR UNKNOWN INDICATION
     Route: 061

REACTIONS (2)
  - MATERNAL EXPOSURE DURING PREGNANCY [None]
  - BLIGHTED OVUM [None]
